FAERS Safety Report 4549625-3 (Version None)
Quarter: 2005Q1

REPORT INFORMATION
  Report Type: 
  Country: None (occurrence: None)
  Receive Date: 20050106
  Receipt Date: 20041221
  Transmission Date: 20050727
  Serious: Yes (Hospitalization)
  Sender: FDA-Public Use
  Company Number: 040067

PATIENT
  Age: 66 Year
  Sex: Female

DRUGS (4)
  1. HALFLYTELY [Suspect]
     Indication: COLONOSCOPY
     Dosage: 20 MG/2 LITER
     Dates: start: 20041031
  2. AMITRIPTYLINE [Concomitant]
  3. ESTRADIOL [Concomitant]
  4. ADVIL [Concomitant]

REACTIONS (3)
  - COLITIS [None]
  - COLON CANCER [None]
  - LARGE INTESTINAL ULCER [None]
